FAERS Safety Report 22636837 (Version 1)
Quarter: 2023Q2

REPORT INFORMATION
  Report Type: Other
  Country: FR (occurrence: FR)
  Receive Date: 20230626
  Receipt Date: 20230626
  Transmission Date: 20230722
  Serious: Yes (Life-Threatening, Hospitalization)
  Sender: FDA-Public Use
  Company Number: None

PATIENT

DRUGS (3)
  1. SERTRALINE [Suspect]
     Active Substance: SERTRALINE HYDROCHLORIDE
     Indication: Substance use
     Dosage: UNK
     Route: 065
     Dates: end: 20230204
  2. BROMAZEPAM [Suspect]
     Active Substance: BROMAZEPAM
     Indication: Substance use
     Dosage: 6 MILLIGRAM 1 TOTAL
     Route: 065
     Dates: start: 20230204, end: 20230204
  3. METHADONE [Suspect]
     Active Substance: METHADONE HYDROCHLORIDE
     Indication: Substance use
     Dosage: 50 MILLIGRAM 1 TOTAL
     Route: 065
     Dates: start: 20230204, end: 20230204

REACTIONS (3)
  - Respiratory depression [Recovered/Resolved]
  - Coma [Recovered/Resolved]
  - Drug abuse [Recovering/Resolving]

NARRATIVE: CASE EVENT DATE: 20230204
